FAERS Safety Report 15012904 (Version 1)
Quarter: 2018Q2

REPORT INFORMATION
  Report Type: Other
  Country: IN (occurrence: IN)
  Receive Date: 20180614
  Receipt Date: 20180614
  Transmission Date: 20180711
  Serious: Yes (Hospitalization, Disabling)
  Sender: FDA-Public Use
  Company Number: IN-NOSTRUM LABORATORIES, INC.-2049437

PATIENT
  Age: 58 Year
  Sex: Male

DRUGS (2)
  1. ACETAZOLAMIDE EXTENDED-RELEASE [Suspect]
     Active Substance: ACETAZOLAMIDE
     Indication: ANGLE CLOSURE GLAUCOMA
     Route: 048
  2. HYDROCHLOROTHIAZIDE. [Concomitant]
     Active Substance: HYDROCHLOROTHIAZIDE

REACTIONS (3)
  - Choroidal detachment [Recovered/Resolved]
  - Iridotomy [Recovered/Resolved]
  - Angle closure glaucoma [Recovered/Resolved]
